FAERS Safety Report 6183863-1 (Version None)
Quarter: 2009Q2

REPORT INFORMATION
  Report Type: 
  Country: None (occurrence: None)
  Receive Date: 20090508
  Receipt Date: 20090429
  Transmission Date: 20091009
  Serious: Yes (Other)
  Sender: FDA-Public Use
  Company Number: BE-PFIZER INC-2009194776

PATIENT

DRUGS (2)
  1. AROMASIN [Suspect]
     Route: 048
  2. MARCUMAR [Interacting]

REACTIONS (3)
  - DRUG INTERACTION [None]
  - INTERNATIONAL NORMALISED RATIO [None]
  - INTERNATIONAL NORMALISED RATIO ABNORMAL [None]
